FAERS Safety Report 6821570-X (Version None)
Quarter: 2010Q3

REPORT INFORMATION
  Report Type: 
  Country: None (occurrence: None)
  Receive Date: 20100707
  Receipt Date: 20090516
  Transmission Date: 20110219
  Serious: No
  Sender: FDA-Public Use
  Company Number: US-PFIZER INC-2009181679

PATIENT
  Sex: Female

DRUGS (3)
  1. ZOLOFT [Suspect]
     Dosage: UNK
  2. SERTRALINE HCL [Suspect]
     Dosage: UNK
  3. METHADONE HYDROCHLORIDE [Concomitant]
     Dosage: UNK

REACTIONS (2)
  - DRUG ABUSE [None]
  - DRUG SCREEN FALSE POSITIVE [None]
